FAERS Safety Report 6377266-4 (Version None)
Quarter: 2009Q3

REPORT INFORMATION
  Report Type: 
  Country: None (occurrence: None)
  Receive Date: 20090924
  Receipt Date: 20090924
  Transmission Date: 20100115
  Serious: Yes (Hospitalization)
  Sender: FDA-Public Use
  Company Number: None

PATIENT
  Age: 84 Year
  Sex: Male
  Weight: 88.8 kg

DRUGS (9)
  1. RISPERIDONE [Suspect]
     Indication: PSYCHOTIC DISORDER
     Dosage: SEE ABOVE
     Route: 048
     Dates: start: 20070801
  2. AMLODIPINE [Concomitant]
  3. CITALOPRAM HYDROBROMIDE [Concomitant]
  4. FINASTERIDE [Concomitant]
  5. GLIPIZIDE [Concomitant]
  6. HYDROCODONE5/ACETAMINOPHEN [Concomitant]
  7. OXYBUTYNIN CL [Concomitant]
  8. RIVASTIGMINE TARTRATE [Concomitant]
  9. SIMVASTATIN [Concomitant]

REACTIONS (1)
  - CARDIAC PACEMAKER INSERTION [None]
